FAERS Safety Report 22304297 (Version 2)
Quarter: 2023Q2

REPORT INFORMATION
  Report Type: Spontaneous
  Country: DK (occurrence: DK)
  Receive Date: 20230510
  Receipt Date: 20230526
  Transmission Date: 20230722
  Serious: Yes (Hospitalization)
  Sender: FDA-Public Use
  Company Number: None

PATIENT
  Age: 31 Year
  Sex: Male

DRUGS (7)
  1. ZYPADHERA [Suspect]
     Active Substance: OLANZAPINE PAMOATE
     Indication: Schizophrenia
     Dosage: UNK UNK, OTHER (EVERY 14 DAYS)
     Route: 030
     Dates: start: 20210412, end: 202108
  2. ZYPADHERA [Suspect]
     Active Substance: OLANZAPINE PAMOATE
     Indication: Schizophrenia
     Dosage: UNK UNK, OTHER (EVERY 14 DAYS)
     Route: 030
     Dates: start: 20210412, end: 202108
  3. ZYPADHERA [Suspect]
     Active Substance: OLANZAPINE PAMOATE
     Indication: Schizophrenia
     Dosage: UNK UNK, OTHER (EVERY 14 DAYS)
     Route: 030
     Dates: start: 20210412, end: 202108
  4. ZYPADHERA [Suspect]
     Active Substance: OLANZAPINE PAMOATE
     Dosage: 300 MG, OTHER (EVERY 14 DAYS)
     Route: 030
     Dates: start: 202108, end: 20230330
  5. ZYPADHERA [Suspect]
     Active Substance: OLANZAPINE PAMOATE
     Dosage: 300 MG, OTHER (EVERY 14 DAYS)
     Route: 030
     Dates: start: 202108, end: 20230330
  6. ZYPADHERA [Suspect]
     Active Substance: OLANZAPINE PAMOATE
     Dosage: 300 MG, OTHER (EVERY 14 DAYS)
     Route: 030
     Dates: start: 202108, end: 20230330
  7. CLOZAPINE [Concomitant]
     Active Substance: CLOZAPINE
     Indication: Schizophrenia
     Dosage: UNK
     Dates: start: 20221223

REACTIONS (5)
  - Injection site infection [Recovered/Resolved]
  - Swelling [Unknown]
  - Malaise [Unknown]
  - Pyrexia [Unknown]
  - Injection site abscess [Recovered/Resolved]

NARRATIVE: CASE EVENT DATE: 20230330
